FAERS Safety Report 7865321-9 (Version None)
Quarter: 2011Q4

REPORT INFORMATION
  Report Type: 
  Country: None (occurrence: None)
  Receive Date: 20111028
  Receipt Date: 20111019
  Transmission Date: 20120403
  Serious: Yes (Other)
  Sender: FDA-Public Use
  Company Number: JP-SANOFI-AVENTIS-2011SA069895

PATIENT

DRUGS (3)
  1. GIMERACIL/OTERACIL POTASSIUM/TEGAFUR [Suspect]
     Indication: GASTRIC CANCER
     Dosage: ON DAYS 1-7 AND 15-21
     Route: 065
  2. DOCETAXEL [Suspect]
     Indication: GASTRIC CANCER
     Dosage: ON DAYS 1 AND 15
     Route: 065
  3. IRINOTECAN HYDROCHLORIDE [Suspect]
     Indication: GASTRIC CANCER
     Route: 065

REACTIONS (1)
  - TOXICITY TO VARIOUS AGENTS [None]
